FAERS Safety Report 10654158 (Version 2)
Quarter: 2016Q2

REPORT INFORMATION
  Report Type: Spontaneous
  Country: US (occurrence: US)
  Receive Date: 20141216
  Receipt Date: 20160509
  Transmission Date: 20160815
  Serious: Yes (Other)
  Sender: FDA-Public Use
  Company Number: US-ELI_LILLY_AND_COMPANY-US201412001554

PATIENT
  Age: 48 Year
  Sex: Female

DRUGS (42)
  1. XANAX [Concomitant]
     Active Substance: ALPRAZOLAM
     Dosage: 2 MG, TID
     Route: 048
  2. LORTAB [Concomitant]
     Active Substance: ACETAMINOPHEN\HYDROCODONE BITARTRATE
     Indication: PAIN
     Dosage: 1 DF, EVERY 4 HRS
     Route: 048
  3. TRAZODONE [Concomitant]
     Active Substance: TRAZODONE HYDROCHLORIDE
     Indication: PRODUCT USED FOR UNKNOWN INDICATION
     Dosage: 200 MG, EACH EVENING
     Route: 048
     Dates: start: 20121120, end: 20121121
  4. CELEXA [Concomitant]
     Active Substance: CITALOPRAM HYDROBROMIDE
     Indication: PRODUCT USED FOR UNKNOWN INDICATION
     Dosage: 20 MG, QD
     Route: 048
     Dates: end: 20121124
  5. ADVAIR HFA [Concomitant]
     Active Substance: FLUTICASONE PROPIONATE\SALMETEROL XINAFOATE
     Indication: PRODUCT USED FOR UNKNOWN INDICATION
     Dosage: 1 DF, BID
     Route: 055
     Dates: start: 20121124, end: 20121126
  6. CYMBALTA [Suspect]
     Active Substance: DULOXETINE HYDROCHLORIDE
     Indication: DEPRESSION
     Dosage: 60 MG, QD
     Route: 048
     Dates: start: 20121121, end: 20121121
  7. CYMBALTA [Suspect]
     Active Substance: DULOXETINE HYDROCHLORIDE
     Dosage: 60 MG, BID
     Route: 048
     Dates: start: 20121122, end: 201212
  8. CYMBALTA [Suspect]
     Active Substance: DULOXETINE HYDROCHLORIDE
     Dosage: 60 MG, BID
     Route: 048
  9. SEROQUEL [Concomitant]
     Active Substance: QUETIAPINE FUMARATE
     Indication: INSOMNIA
     Dosage: 300 MG, EACH EVENING
     Route: 048
     Dates: start: 20121122, end: 20121124
  10. AMLODIPINE [Concomitant]
     Active Substance: AMLODIPINE BESYLATE
     Indication: PRODUCT USED FOR UNKNOWN INDICATION
     Dosage: 5 MG, QD
     Route: 048
     Dates: start: 20121118
  11. ACETAMINOPHEN. [Concomitant]
     Active Substance: ACETAMINOPHEN
     Indication: PAIN
     Dosage: 650 MG, EVERY 4 HRS
     Route: 048
     Dates: start: 20121118, end: 20121126
  12. MAGNESIUM HYDROXIDE. [Concomitant]
     Active Substance: MAGNESIUM HYDROXIDE
     Indication: CONSTIPATION
     Dosage: 30 ML, EVERY 8 HRS
     Route: 048
     Dates: start: 20121118, end: 20121126
  13. PHENERGAN [Concomitant]
     Active Substance: PROMETHAZINE HYDROCHLORIDE
     Indication: NAUSEA
     Dosage: 25 MG, EVERY 4 HRS
     Route: 048
     Dates: start: 20121121, end: 20121126
  14. COLACE [Concomitant]
     Active Substance: DOCUSATE SODIUM
     Indication: PRODUCT USED FOR UNKNOWN INDICATION
     Dosage: UNK, UNKNOWN
     Route: 065
  15. CLONIDINE. [Concomitant]
     Active Substance: CLONIDINE
     Indication: PRODUCT USED FOR UNKNOWN INDICATION
     Dosage: 0.2 MG, TID
     Route: 048
     Dates: start: 20121118, end: 20121126
  16. CLONIDINE. [Concomitant]
     Active Substance: CLONIDINE
     Dosage: 0.2 MG, TID
     Route: 048
  17. ZOLPIDEM [Concomitant]
     Active Substance: ZOLPIDEM\ZOLPIDEM TARTRATE
     Indication: PRODUCT USED FOR UNKNOWN INDICATION
     Dosage: 10 MG, EACH EVENING
     Route: 048
     Dates: end: 20121121
  18. CIPROFLOXACIN. [Concomitant]
     Active Substance: CIPROFLOXACIN
     Indication: PRODUCT USED FOR UNKNOWN INDICATION
     Dosage: 500 MG, BID
     Route: 048
     Dates: start: 20121119, end: 20121124
  19. CEPACOL                            /00104701/ [Concomitant]
     Indication: OROPHARYNGEAL PAIN
     Dosage: 1 DF, EVERY 2 HRS
     Route: 048
     Dates: start: 20121122, end: 20121126
  20. KEPPRA [Concomitant]
     Active Substance: LEVETIRACETAM
     Indication: PRODUCT USED FOR UNKNOWN INDICATION
     Dosage: 2000 MG, BID
     Route: 048
  21. DULCOLAX (BISACODYL) [Concomitant]
     Active Substance: BISACODYL
     Indication: CONSTIPATION
     Dosage: 5 MG, QD
     Route: 048
  22. XANAX [Concomitant]
     Active Substance: ALPRAZOLAM
     Indication: ANXIETY
     Dosage: 1 MG, TID
     Route: 048
  23. ADVAIR HFA [Concomitant]
     Active Substance: FLUTICASONE PROPIONATE\SALMETEROL XINAFOATE
     Indication: PRODUCT USED FOR UNKNOWN INDICATION
     Dosage: UNK, UNKNOWN
     Route: 065
  24. ONDANSETRON [Concomitant]
     Active Substance: ONDANSETRON
     Indication: VOMITING
  25. ASPIRIN                            /00002701/ [Concomitant]
     Active Substance: ASPIRIN
     Indication: BODY TEMPERATURE INCREASED
  26. NICOTINE. [Concomitant]
     Active Substance: NICOTINE
     Indication: PRODUCT USED FOR UNKNOWN INDICATION
     Dosage: 21 MG, QD
     Route: 061
     Dates: start: 20121118, end: 20121126
  27. TUSSIONEX PENNKINETIC [Concomitant]
     Active Substance: CHLORPHENIRAMINE\HYDROCODONE
     Indication: COUGH
     Dosage: 5 ML, BID
     Route: 048
     Dates: start: 20121121, end: 20121126
  28. IPRATROPIUM BROMIDE AND SALBUTAMOL SULFATE [Concomitant]
     Active Substance: ALBUTEROL SULFATE\IPRATROPIUM BROMIDE
     Indication: PRODUCT USED FOR UNKNOWN INDICATION
     Dosage: 3 ML, EVERY 6 HRS
     Route: 055
  29. AZITHROMYCIN ANHYDROUS. [Concomitant]
     Active Substance: AZITHROMYCIN ANHYDROUS
     Indication: PRODUCT USED FOR UNKNOWN INDICATION
     Dosage: 250 MG, QD
     Route: 048
     Dates: start: 20121119, end: 20121123
  30. ASPIRIN                            /00002701/ [Concomitant]
     Active Substance: ASPIRIN
     Indication: PAIN
     Dosage: 650 MG, EVERY 4 HRS
     Route: 048
  31. MIRALAX [Concomitant]
     Active Substance: POLYETHYLENE GLYCOL 3350
     Indication: PRODUCT USED FOR UNKNOWN INDICATION
     Dosage: UNK, UNKNOWN
     Route: 065
  32. CHLORASEPTIC SORE THROAT [Concomitant]
     Active Substance: PHENOL
     Indication: OROPHARYNGEAL PAIN
     Dosage: 1 DF, EVERY 2 HRS
     Route: 048
     Dates: start: 20121122, end: 20121126
  33. ATARAX [Concomitant]
     Active Substance: HYDROXYZINE\HYDROXYZINE HYDROCHLORIDE
     Indication: PRODUCT USED FOR UNKNOWN INDICATION
     Dosage: 50 MG, BID
     Route: 048
  34. SEROQUEL [Concomitant]
     Active Substance: QUETIAPINE FUMARATE
     Indication: MOOD ALTERED
     Dosage: 200 MG, EACH EVENING
     Route: 048
     Dates: start: 20121121
  35. SEROQUEL [Concomitant]
     Active Substance: QUETIAPINE FUMARATE
     Dosage: 400 MG, EACH EVENING
     Route: 048
     Dates: start: 20121125
  36. GUAIFENESIN. [Concomitant]
     Active Substance: GUAIFENESIN
     Indication: COUGH
     Dosage: 300 MG, EVERY 6 HRS
     Route: 048
     Dates: start: 20121119, end: 20121126
  37. PREDNISONE. [Concomitant]
     Active Substance: PREDNISONE
     Indication: PRODUCT USED FOR UNKNOWN INDICATION
     Dosage: 40 MG, QD
     Route: 048
     Dates: start: 20121124, end: 20121127
  38. POTASSIUM CHLORIDE. [Concomitant]
     Active Substance: POTASSIUM CHLORIDE
     Indication: BLOOD POTASSIUM
     Dosage: UNK UNK, PRN
     Route: 048
     Dates: start: 20121118, end: 20121126
  39. ONDANSETRON [Concomitant]
     Active Substance: ONDANSETRON
     Indication: NAUSEA
     Dosage: 8 MG, TID
     Route: 048
     Dates: start: 20121118, end: 20121126
  40. ACETAMINOPHEN. [Concomitant]
     Active Substance: ACETAMINOPHEN
     Indication: BODY TEMPERATURE INCREASED
     Dosage: 650 MG, EVERY 6 HRS
     Route: 048
  41. MYLANTA [Concomitant]
     Active Substance: ALUMINUM HYDROXIDE\DIMETHICONE\MAGNESIUM HYDROXIDE
     Indication: DYSPEPSIA
     Dosage: 30 ML, EVERY 6 HRS
     Route: 048
     Dates: start: 20121118, end: 20121126
  42. LORTAB [Concomitant]
     Active Substance: ACETAMINOPHEN\HYDROCODONE BITARTRATE
     Dosage: 1 DF, PRN
     Route: 048

REACTIONS (10)
  - Sleep disorder [Unknown]
  - Vertigo [Unknown]
  - Suicidal ideation [Unknown]
  - Drug withdrawal syndrome [Unknown]
  - Nightmare [Unknown]
  - Irritability [Unknown]
  - Dizziness [Unknown]
  - Mood swings [Recovered/Resolved]
  - Agitation [Unknown]
  - Nausea [Unknown]

NARRATIVE: CASE EVENT DATE: 20121202
